FAERS Safety Report 15371978 (Version 1)
Quarter: 2018Q3

REPORT INFORMATION
  Report Type: Spontaneous
  Country: US (occurrence: US)
  Receive Date: 20180911
  Receipt Date: 20180911
  Transmission Date: 20181010
  Serious: Yes (Disabling, Other)
  Sender: FDA-Public Use
  Company Number: US-REGENERON PHARMACEUTICALS, INC.-2018-36371

PATIENT

DRUGS (3)
  1. METFORMIN [Concomitant]
     Active Substance: METFORMIN HYDROCHLORIDE
     Indication: PRODUCT USED FOR UNKNOWN INDICATION
     Dosage: TWICE A DAY
  2. EYLEA [Suspect]
     Active Substance: AFLIBERCEPT
     Indication: DRY AGE-RELATED MACULAR DEGENERATION
     Dosage: UNK, RIGHT EYE, EVERY 4?6 WEEKS
     Route: 031
     Dates: start: 2018
  3. GLIPIZIDE. [Concomitant]
     Active Substance: GLIPIZIDE
     Indication: PRODUCT USED FOR UNKNOWN INDICATION
     Dosage: IN THE MORNING

REACTIONS (7)
  - Cataract [Unknown]
  - Eye irritation [Recovered/Resolved]
  - Eye infection [Not Recovered/Not Resolved]
  - Eye pain [Unknown]
  - Off label use [Unknown]
  - Abnormal sensation in eye [Unknown]
  - Blindness [Unknown]

NARRATIVE: CASE EVENT DATE: 2018
